FAERS Safety Report 7683289-5 (Version None)
Quarter: 2011Q3

REPORT INFORMATION
  Report Type: 
  Country: None (occurrence: None)
  Receive Date: 20110815
  Receipt Date: 20110725
  Transmission Date: 20111222
  Serious: Yes (Other)
  Sender: FDA-Public Use
  Company Number: CA-GLAXOSMITHKLINE-A0938055A

PATIENT
  Sex: Female
  Weight: 73.5 kg

DRUGS (5)
  1. SPIRIVA [Concomitant]
     Indication: CHRONIC OBSTRUCTIVE PULMONARY DISEASE
  2. DICLOFENAC SODIUM [Concomitant]
  3. ADVAIR DISKUS 100/50 [Suspect]
     Indication: CHRONIC OBSTRUCTIVE PULMONARY DISEASE
     Dosage: 1PUFF TWICE PER DAY
     Route: 055
  4. VENTOLIN HFA [Concomitant]
     Indication: CHRONIC OBSTRUCTIVE PULMONARY DISEASE
  5. AIROMIR [Concomitant]

REACTIONS (10)
  - DRUG ADMINISTRATION ERROR [None]
  - ABDOMINAL DISTENSION [None]
  - PRODUCTIVE COUGH [None]
  - INAPPROPRIATE SCHEDULE OF DRUG ADMINISTRATION [None]
  - WEIGHT INCREASED [None]
  - LACERATION [None]
  - THYROID FUNCTION TEST ABNORMAL [None]
  - WEIGHT LOSS POOR [None]
  - DYSPNOEA [None]
  - PNEUMONIA [None]
